FAERS Safety Report 13150334 (Version 1)
Quarter: 2017Q1

REPORT INFORMATION
  Report Type: Report from Study
  Country: US (occurrence: US)
  Receive Date: 20170125
  Receipt Date: 20170125
  Transmission Date: 20170428
  Serious: Yes (Death)
  Sender: FDA-Public Use
  Company Number: US-THERATECHNOLOGIES, INC.-TH-2016-00155

PATIENT

DRUGS (19)
  1. NORVIR [Concomitant]
     Active Substance: RITONAVIR
     Indication: ACQUIRED IMMUNODEFICIENCY SYNDROME
     Dosage: 100 MG MILLIGRAM(S), QD
     Route: 048
     Dates: start: 20081015
  2. WELLBUTRIN XL [Concomitant]
     Active Substance: BUPROPION HYDROCHLORIDE
     Indication: DEPRESSION
     Dosage: 150 MG MILLIGRAM(S), QD
     Route: 048
     Dates: start: 20080301
  3. TOPIRAMATE. [Concomitant]
     Active Substance: TOPIRAMATE
     Indication: TREMOR
     Dosage: 25 MG MILLIGRAM(S), BID
     Route: 048
     Dates: start: 20140818
  4. NOVOLIN 70/30 [Concomitant]
     Active Substance: INSULIN HUMAN
     Indication: TYPE 2 DIABETES MELLITUS
     Dosage: 30 IU, BID
     Route: 058
     Dates: start: 19960715
  5. JANUVIA [Concomitant]
     Active Substance: SITAGLIPTIN PHOSPHATE
     Indication: TYPE 2 DIABETES MELLITUS
     Dosage: 100 MG MILLIGRAM(S), QD
     Route: 048
     Dates: start: 19960715
  6. VITAMIN B COMPLEX [Concomitant]
     Active Substance: CYANOCOBALAMIN\DEXPANTHENOL\NIACINAMIDE\PYRIDOXINE HYDROCHLORIDE\RIBOFLAVIN 5^-PHOSPHATE SODIUM\THIAMINE HYDROCHLORIDE\VITAMIN B COMPLEX
     Indication: VITAMIN SUPPLEMENTATION
     Dosage: 1 TAB, QD
     Route: 048
     Dates: start: 20080115
  7. MULTIVITAMIN [Concomitant]
     Active Substance: VITAMINS
     Indication: VITAMIN SUPPLEMENTATION
     Dosage: 1 TAB, QD
     Dates: start: 19950115
  8. OSCAL D [Concomitant]
     Active Substance: CALCIUM CARBONATE\CHOLECALCIFEROL
     Indication: VITAMIN SUPPLEMENTATION
     Dosage: 500 MG MILLIGRAM(S), QD
     Route: 048
     Dates: start: 20080115
  9. CIALIS [Concomitant]
     Active Substance: TADALAFIL
     Indication: ERECTILE DYSFUNCTION
     Dosage: 20 MG MILLIGRAM(S), PRN
     Route: 048
     Dates: start: 20011210
  10. MEDROXYPROGESTERONE [Concomitant]
     Active Substance: MEDROXYPROGESTERONE
     Indication: HORMONE REPLACEMENT THERAPY
     Dosage: 10 MG MILLIGRAM(S), QD
     Route: 048
     Dates: start: 20140520
  11. EGRIFTA [Suspect]
     Active Substance: TESAMORELIN
     Indication: LIPODYSTROPHY ACQUIRED
     Dosage: 2 MG MILLIGRAM(S), QD
     Route: 058
     Dates: start: 20150618, end: 20160909
  12. ESTRADIOL. [Concomitant]
     Active Substance: ESTRADIOL
     Indication: HORMONE REPLACEMENT THERAPY
     Dosage: 2 MG MILLIGRAM(S), QD
     Route: 048
     Dates: start: 20140520
  13. EGRIFTA [Suspect]
     Active Substance: TESAMORELIN
     Indication: LIPODYSTROPHY ACQUIRED
     Dosage: 2 MG MILLIGRAM(S), QD
     Route: 058
     Dates: start: 20150618, end: 20160909
  14. EPZICOM [Concomitant]
     Active Substance: ABACAVIR SULFATE\LAMIVUDINE
     Indication: ACQUIRED IMMUNODEFICIENCY SYNDROME
     Dosage: 900 MG MILLIGRAM(S), QD
     Route: 048
     Dates: start: 20081015
  15. TESTIM [Concomitant]
     Active Substance: TESTOSTERONE
     Indication: HYPOGONADISM
     Dosage: 10 G GRAM(S), QD
     Route: 048
     Dates: start: 20011210
  16. REYATAZ [Concomitant]
     Active Substance: ATAZANAVIR SULFATE
     Indication: ACQUIRED IMMUNODEFICIENCY SYNDROME
     Dosage: 300 MG MILLIGRAM(S), QD
     Route: 048
     Dates: start: 20081015
  17. GLUCOTROL [Concomitant]
     Active Substance: GLIPIZIDE
     Indication: TYPE 2 DIABETES MELLITUS
     Dosage: 10 MG MILLIGRAM(S), QD
     Route: 048
     Dates: start: 19960715
  18. CRESTOR [Concomitant]
     Active Substance: ROSUVASTATIN CALCIUM
     Indication: HYPERLIPIDAEMIA
     Dosage: 40 MG MILLIGRAM(S), QD
     Route: 048
     Dates: start: 20081210
  19. SPIRONOLACTONE. [Concomitant]
     Active Substance: SPIRONOLACTONE
     Indication: HORMONE REPLACEMENT THERAPY
     Dosage: 100 MG MILLIGRAM(S), QD
     Route: 048
     Dates: start: 20140520

REACTIONS (4)
  - Incorrect drug administration duration [None]
  - Ketoacidosis [Fatal]
  - Death [Fatal]
  - Drug screen positive [None]

NARRATIVE: CASE EVENT DATE: 20161101
